FAERS Safety Report 11301517 (Version 1)
Quarter: 2015Q3

REPORT INFORMATION
  Report Type: Spontaneous
  Country: US (occurrence: US)
  Receive Date: 20150722
  Receipt Date: 20150722
  Transmission Date: 20151125
  Serious: No
  Sender: FDA-Public Use
  Company Number: US-ELI_LILLY_AND_COMPANY-US201001003186

PATIENT
  Sex: Male

DRUGS (5)
  1. HUMATROPE [Suspect]
     Active Substance: SOMATROPIN
     Dosage: 1.2 MG, EACH EVENING
  2. ALBUTEROL. [Concomitant]
     Active Substance: ALBUTEROL
     Dosage: UNK, UNKNOWN
     Route: 055
  3. ALLERGY MEDICATION [Concomitant]
     Active Substance: DIPHENHYDRAMINE HYDROCHLORIDE
     Dosage: UNK, UNK
     Route: 051
     Dates: start: 2007
  4. HUMATROPE [Suspect]
     Active Substance: SOMATROPIN
     Indication: BODY HEIGHT BELOW NORMAL
     Dosage: 1.2 MG, EACH EVENING
     Dates: start: 200909
  5. FLOVENT [Concomitant]
     Active Substance: FLUTICASONE PROPIONATE
     Dosage: 44 UG, DAILY (1/D)

REACTIONS (8)
  - Multiple allergies [Not Recovered/Not Resolved]
  - Throat tightness [Unknown]
  - Sinusitis [Unknown]
  - Drug dose omission [Recovered/Resolved]
  - Asthma [Unknown]
  - Cough [Unknown]
  - Chest discomfort [Unknown]
  - Influenza [Unknown]

NARRATIVE: CASE EVENT DATE: 2009
